FAERS Safety Report 5538246-1 (Version None)
Quarter: 2007Q4

REPORT INFORMATION
  Report Type: 
  Country: None (occurrence: None)
  Receive Date: 20071204
  Receipt Date: 20071123
  Transmission Date: 20080405
  Serious: Yes (Hospitalization)
  Sender: FDA-Public Use
  Company Number: 2007AP001372

PATIENT
  Age: 55 Year
  Sex: Male

DRUGS (4)
  1. TERBINAFINE HCL [Suspect]
     Indication: ONYCHOMYCOSIS
     Dosage: 250 MG; UNKNOWN; PO; UNKNOWN
     Route: 048
     Dates: start: 20070524
  2. AMOXICILLIN [Concomitant]
  3. CLAVULANATE POTASSIUM                   (CLAVULANATE POTASSIUM) [Concomitant]
  4. SALBUTAMOL                   (SALBUTAMOL) [Concomitant]

REACTIONS (2)
  - CONGESTIVE CARDIOMYOPATHY [None]
  - LOWER RESPIRATORY TRACT INFECTION [None]
